FAERS Safety Report 5593124-7 (Version None)
Quarter: 2008Q1

REPORT INFORMATION
  Report Type: 
  Country: None (occurrence: None)
  Receive Date: 20080114
  Receipt Date: 20080114
  Transmission Date: 20080703
  Serious: Yes (Disabling)
  Sender: FDA-Public Use
  Company Number: None

PATIENT
  Age: 36 Year
  Sex: Male
  Weight: 101.2 kg

DRUGS (1)
  1. MEFLOQUINE [Suspect]
     Indication: MALARIA PROPHYLAXIS
     Dosage: 250MG  QWEEK  PO
     Route: 048
     Dates: start: 20030501, end: 20040601

REACTIONS (2)
  - ROAD TRAFFIC ACCIDENT [None]
  - VERTIGO POSITIONAL [None]
